FAERS Safety Report 19745715 (Version 1)
Quarter: 2021Q3

REPORT INFORMATION
  Report Type: Other
  Country: RU (occurrence: RU)
  Receive Date: 20210825
  Receipt Date: 20210825
  Transmission Date: 20211014
  Serious: Yes (Other)
  Sender: FDA-Public Use
  Company Number: RU-ROCHE-2895118

PATIENT

DRUGS (2)
  1. NETAKIMAB. [Suspect]
     Active Substance: NETAKIMAB
     Indication: COVID-19
     Route: 065
  2. TOCILIZUMAB. [Suspect]
     Active Substance: TOCILIZUMAB
     Indication: COVID-19
     Route: 042

REACTIONS (7)
  - Urinary tract infection [Unknown]
  - Pulmonary embolism [Unknown]
  - Cholestasis [Unknown]
  - Off label use [Unknown]
  - Pneumonia [Unknown]
  - Acute kidney injury [Unknown]
  - Alanine aminotransferase increased [Unknown]
